FAERS Safety Report 6326044-0 (Version None)
Quarter: 2009Q3

REPORT INFORMATION
  Report Type: 
  Country: None (occurrence: None)
  Receive Date: 20090824
  Receipt Date: 20090811
  Transmission Date: 20100115
  Serious: Yes (Hospitalization)
  Sender: FDA-Public Use
  Company Number: JP-TEVA-206647ISR

PATIENT
  Sex: Male
  Weight: 54.3 kg

DRUGS (20)
  1. CISPLATIN [Suspect]
     Indication: NON-SMALL CELL LUNG CANCER
     Route: 042
     Dates: start: 20090617
  2. CISPLATIN [Suspect]
     Route: 042
     Dates: start: 20090710, end: 20090731
  3. AXITINIB [Suspect]
     Indication: NON-SMALL CELL LUNG CANCER
     Route: 048
     Dates: start: 20090617, end: 20090809
  4. PEMETREXED [Suspect]
     Indication: NON-SMALL CELL LUNG CANCER
     Route: 042
     Dates: start: 20090617, end: 20090731
  5. OXYCODONE HCL [Concomitant]
     Indication: PAIN
     Dates: start: 20090513, end: 20090807
  6. MORPHINE HYDROCHLORIDE [Concomitant]
     Indication: PAIN
     Dates: start: 20090521
  7. PARACETAMOL [Concomitant]
     Indication: PAIN
     Dates: start: 20090612
  8. MAGNESIUM OXIDE [Concomitant]
     Indication: CONSTIPATION
     Dates: start: 20090716
  9. ONDANSETRON HYDROCHLORIDE [Concomitant]
     Indication: NAUSEA
     Dates: start: 20090801
  10. GABAPENTIN [Concomitant]
     Indication: PAIN
     Dates: start: 20090622
  11. METOCLOPRAMIDE [Concomitant]
     Indication: NAUSEA
     Dates: start: 20090718
  12. LEVOTHYROXINE SODIUM [Concomitant]
     Indication: BLOOD THYROID STIMULATING HORMONE INCREASED
     Dates: start: 20090708
  13. SENNOSIDE A+B [Concomitant]
     Indication: CONSTIPATION
     Dates: start: 20090720
  14. LACTULOSE [Concomitant]
     Indication: CONSTIPATION
     Dates: start: 20090723
  15. HYOSCINE HBR HYT [Concomitant]
     Indication: ABDOMINAL PAIN
     Dates: start: 20090809
  16. FAMOTIDINE [Concomitant]
     Indication: ABDOMINAL PAIN
     Dates: start: 20090731, end: 20090806
  17. FENTANYL [Concomitant]
     Indication: PAIN
     Dates: start: 20090807
  18. HACHIAZULE [Concomitant]
     Indication: STOMATITIS
     Dates: start: 20090809
  19. HYDROXOCOBALAMIN ACETATE [Concomitant]
     Dates: start: 20090529
  20. PANVITAN [Concomitant]
     Dates: start: 20090529

REACTIONS (1)
  - ENTERITIS [None]
